FAERS Safety Report 22008317 (Version 2)
Quarter: 2023Q1

REPORT INFORMATION
  Report Type: Spontaneous
  Country: FR (occurrence: FR)
  Receive Date: 20230219
  Receipt Date: 20230329
  Transmission Date: 20230418
  Serious: Yes (Hospitalization, Other)
  Sender: FDA-Public Use
  Company Number: None

PATIENT
  Age: 0 Year
  Sex: Male
  Weight: 5 kg

DRUGS (2)
  1. CHLORHEXIDINE GLUCONATE [Suspect]
     Active Substance: CHLORHEXIDINE GLUCONATE
     Indication: Wound infection
     Route: 045
     Dates: start: 20230112, end: 20230112
  2. SODIUM CHLORIDE [Suspect]
     Active Substance: SODIUM CHLORIDE
     Indication: Nasal congestion
     Dosage: NON ADMINISTRE
     Route: 045
     Dates: start: 20230112, end: 20230112

REACTIONS (6)
  - Respiratory distress [Recovered/Resolved]
  - Product packaging confusion [Recovered/Resolved]
  - Salivary hypersecretion [Recovered/Resolved]
  - Brief resolved unexplained event [Recovered/Resolved]
  - Sinus tachycardia [Recovered/Resolved]
  - Wrong product administered [Recovered/Resolved]

NARRATIVE: CASE EVENT DATE: 20230112
